FAERS Safety Report 8861623 (Version 1)
Quarter: 2012Q4

REPORT INFORMATION
  Report Type: 
  Country: US (occurrence: US)
  Receive Date: 20121025
  Receipt Date: 20121025
  Transmission Date: 20130627
  Serious: No
  Sender: FDA-Public Use
  Company Number: US-AMGEN-USASP2012018529

PATIENT
  Age: 47 Year
  Sex: Female
  Weight: 62.59 kg

DRUGS (3)
  1. ENBREL [Suspect]
     Indication: PRODUCT USED FOR UNKNOWN INDICATION
     Dosage: 50 mg, q3wk
     Route: 058
  2. VOLTAREN                           /00372301/ [Concomitant]
     Dosage: 25 mg, UNK
  3. MULTIVITAMIN                       /01229101/ [Concomitant]
     Dosage: UNK

REACTIONS (2)
  - Dizziness [Unknown]
  - Exposure to contaminated air [Unknown]
